FAERS Safety Report 5010115-5 (Version None)
Quarter: 2006Q2

REPORT INFORMATION
  Report Type: 
  Country: None (occurrence: None)
  Receive Date: 20060404
  Receipt Date: 20051219
  Transmission Date: 20061013
  Serious: No
  Sender: FDA-Public Use
  Company Number: US200512001112

PATIENT
  Age: 56 Year
  Sex: Female

DRUGS (6)
  1. CYMBALTA [Suspect]
     Indication: FIBROMYALGIA
     Dosage: SEE IMAGE
     Dates: start: 20050301
  2. ALLEGRA [Concomitant]
  3. SKELAXIN [Concomitant]
  4. SINGULAIR [Concomitant]
  5. AMBIEN [Concomitant]
  6. GUAIFENESIN (GUAIFENESIN) [Concomitant]

REACTIONS (2)
  - ENURESIS [None]
  - SOMNOLENCE [None]
